FAERS Safety Report 7204862-4 (Version None)
Quarter: 2010Q4

REPORT INFORMATION
  Report Type: 
  Country: None (occurrence: None)
  Receive Date: 20101230
  Receipt Date: 20101220
  Transmission Date: 20110411
  Serious: Yes (Hospitalization)
  Sender: FDA-Public Use
  Company Number: FR-ABBOTT-10P-056-0689682-00

PATIENT
  Age: 24 Year
  Sex: Female

DRUGS (3)
  1. DEPAKOTE [Suspect]
     Indication: PRODUCT USED FOR UNKNOWN INDICATION
     Dosage: 125 TABLETS 500 MG EACH
  2. ALPRAZOLAM [Suspect]
     Indication: PRODUCT USED FOR UNKNOWN INDICATION
     Dosage: 30 TABLETS 0.5 MG EACH
  3. TIAPRIDE [Suspect]
     Indication: PRODUCT USED FOR UNKNOWN INDICATION
     Dosage: 40 TABLETS 100 MG EACH

REACTIONS (9)
  - CONVULSION [None]
  - HYPERAMMONAEMIA [None]
  - LEUKOPENIA [None]
  - LOSS OF CONSCIOUSNESS [None]
  - METABOLIC ACIDOSIS [None]
  - OVERDOSE [None]
  - SUICIDE ATTEMPT [None]
  - THERAPEUTIC AGENT TOXICITY [None]
  - THROMBOCYTOPENIA [None]
